FAERS Safety Report 10401633 (Version 1)
Quarter: 2014Q3

REPORT INFORMATION
  Report Type: Spontaneous
  Country: US (occurrence: None)
  Receive Date: 20140812
  Receipt Date: 20140812
  Transmission Date: 20150326
  Serious: Yes (Hospitalization)
  Sender: FDA-Public Use
  Company Number: OTH-PAT-2014013

PATIENT
  Sex: Male

DRUGS (1)
  1. CYSTADANE [Suspect]
     Active Substance: BETAINE
     Indication: CEREBROHEPATORENAL SYNDROME
     Dosage: N/A TO ONGOING

REACTIONS (3)
  - Off label use [None]
  - Pyrexia [None]
  - Salmonellosis [None]

NARRATIVE: CASE EVENT DATE: 20140709
